FAERS Safety Report 9877598 (Version 1)
Quarter: 2014Q1

REPORT INFORMATION
  Report Type: Spontaneous
  Country: FR (occurrence: FR)
  Receive Date: 20140206
  Receipt Date: 20140206
  Transmission Date: 20141002
  Serious: Yes (Hospitalization)
  Sender: FDA-Public Use
  Company Number: FR-009507513-1401FRA013432

PATIENT
  Sex: Male

DRUGS (7)
  1. SINEMET 100 MG / 10 MG COMPRIME SECABLE [Suspect]
     Indication: PARKINSON^S DISEASE
     Dosage: 6 DF, QD
     Route: 048
     Dates: start: 2008
  2. SINEMET L.P. [Suspect]
     Indication: PARKINSON^S DISEASE
     Dosage: 1 DF, QD
     Route: 048
  3. LEVOTHYROX [Concomitant]
  4. SERETIDE [Concomitant]
  5. TEMERIT [Concomitant]
  6. PREVISCAN [Concomitant]
  7. KARDEGIC [Concomitant]

REACTIONS (1)
  - Adverse event [Unknown]
